FAERS Safety Report 4516371-1 (Version None)
Quarter: 2004Q4

REPORT INFORMATION
  Report Type: 
  Country: None (occurrence: None)
  Receive Date: 20041202
  Receipt Date: 20040623
  Transmission Date: 20050328
  Serious: Yes (Other)
  Sender: FDA-Public Use
  Company Number: US-GLAXOSMITHKLINE-A0516144A

PATIENT
  Age: 10 Year
  Sex: Female

DRUGS (1)
  1. AUGMENTIN ES-600 [Suspect]
     Indication: PHARYNGITIS
     Route: 048
     Dates: start: 20040526, end: 20040528

REACTIONS (1)
  - STEVENS-JOHNSON SYNDROME [None]
